FAERS Safety Report 24127646 (Version 4)
Quarter: 2024Q3

REPORT INFORMATION
  Report Type: Spontaneous
  Country: US (occurrence: US)
  Receive Date: 20240723
  Receipt Date: 20240808
  Transmission Date: 20241017
  Serious: Yes (Hospitalization, Other)
  Sender: SANOFI AVENTIS
  Company Number: US-SA-SAC20240717001307

PATIENT
  Age: 63 Year
  Sex: Female

DRUGS (2)
  1. DUPIXENT [Suspect]
     Active Substance: DUPILUMAB
     Indication: Dermatitis
     Dosage: 600 MG, 1X
     Route: 058
     Dates: start: 202401, end: 202401
  2. DUPIXENT [Suspect]
     Active Substance: DUPILUMAB
     Indication: Eczema
     Dosage: 300 MG, QOW
     Route: 058
     Dates: start: 202401

REACTIONS (14)
  - Cerebrovascular accident [Unknown]
  - Cardiomyopathy [Unknown]
  - Left ventricular hypertrophy [Unknown]
  - Hypertension [Unknown]
  - Hemiparesis [Recovering/Resolving]
  - Brain fog [Recovering/Resolving]
  - Rash erythematous [Unknown]
  - Memory impairment [Recovering/Resolving]
  - Aphasia [Recovering/Resolving]
  - Dermatitis [Unknown]
  - Pruritus [Unknown]
  - Skin burning sensation [Unknown]
  - Condition aggravated [Unknown]
  - Product use in unapproved indication [Unknown]

NARRATIVE: CASE EVENT DATE: 20240101
